FAERS Safety Report 8735324 (Version 3)
Quarter: 2012Q4

REPORT INFORMATION
  Report Type: 
  Country: TR (occurrence: TR)
  Receive Date: 20120822
  Receipt Date: 20120920
  Transmission Date: 20130627
  Serious: Yes (Hospitalization, Other)
  Sender: FDA-Public Use
  Company Number: TR-AMGEN-TURSP2012052365

PATIENT
  Age: 30 Year
  Sex: Female

DRUGS (1)
  1. ENBREL [Suspect]
     Indication: ANKYLOSING SPONDYLITIS
     Dosage: 50 mg, UNK
     Route: 058
     Dates: start: 20110711, end: 2012

REACTIONS (5)
  - Sensory loss [Not Recovered/Not Resolved]
  - Burning sensation [Unknown]
  - Urticaria [Not Recovered/Not Resolved]
  - Polyneuropathy [Unknown]
  - Pain [Unknown]
